FAERS Safety Report 13075381 (Version 1)
Quarter: 2016Q4

REPORT INFORMATION
  Report Type: Spontaneous
  Country: RU (occurrence: RU)
  Receive Date: 20161230
  Receipt Date: 20161230
  Transmission Date: 20170207
  Serious: Yes (Hospitalization)
  Sender: FDA-Public Use
  Company Number: RU-GLAXOSMITHKLINE-RU2016GSK192396

PATIENT
  Age: 32 Year
  Sex: Female

DRUGS (1)
  1. TAVEGYL [Suspect]
     Active Substance: CLEMASTINE FUMARATE
     Indication: PRODUCT USED FOR UNKNOWN INDICATION
     Dosage: UNK
     Route: 048

REACTIONS (3)
  - Rash [Recovered/Resolved]
  - Pruritus [Recovered/Resolved]
  - Urticaria [Recovered/Resolved]

NARRATIVE: CASE EVENT DATE: 201302
